FAERS Safety Report 24223247 (Version 2)
Quarter: 2024Q4

REPORT INFORMATION
  Report Type: Spontaneous
  Country: IN (occurrence: IN)
  Receive Date: 20240819
  Receipt Date: 20241021
  Transmission Date: 20250115
  Serious: Yes (Death, Other)
  Sender: NOVARTIS
  Company Number: IN-002147023-NVSC2024IN166904

PATIENT
  Age: 33 Year
  Sex: Male

DRUGS (8)
  1. BASILIXIMAB [Suspect]
     Active Substance: BASILIXIMAB
     Indication: Heart transplant
     Dosage: 20MG IN 50 ML NORMAL SALINE OVER 30MIN
     Route: 065
  2. METHYLPREDNISOLONE [Suspect]
     Active Substance: METHYLPREDNISOLONE
     Indication: Heart transplant
     Dosage: 500 MG + 500 MG
     Route: 065
  3. TACROLIMUS [Suspect]
     Active Substance: TACROLIMUS
     Indication: Heart transplant
     Dosage: UNK
     Route: 065
  4. MYCOPHENOLATE MOFETIL [Suspect]
     Active Substance: MYCOPHENOLATE MOFETIL
     Indication: Heart transplant
     Dosage: UNK
     Route: 065
  5. PREDNISOLONE [Suspect]
     Active Substance: PREDNISOLONE
     Indication: Heart transplant
     Dosage: UNK
     Route: 065
  6. MEROPENEM [Suspect]
     Active Substance: MEROPENEM
     Indication: Heart transplant
     Dosage: UNK
     Route: 065
  7. TARGOCID [Suspect]
     Active Substance: TEICOPLANIN
     Indication: Heart transplant
     Dosage: UNK
     Route: 065
  8. SEPTRAN [Concomitant]
     Indication: Heart transplant
     Dosage: UNK
     Route: 065

REACTIONS (6)
  - Aortic aneurysm [Fatal]
  - Pyrexia [Fatal]
  - Dyspnoea [Fatal]
  - Haemorrhage [Fatal]
  - Aspergillus infection [Fatal]
  - Product use in unapproved indication [Unknown]
